FAERS Safety Report 24700023 (Version 2)
Quarter: 2024Q4

REPORT INFORMATION
  Report Type: Spontaneous
  Country: US (occurrence: US)
  Receive Date: 20241205
  Receipt Date: 20241213
  Transmission Date: 20250114
  Serious: Yes (Other)
  Sender: SANOFI AVENTIS
  Company Number: US-SA-2024SA358083

PATIENT
  Age: 55 Year
  Sex: Female

DRUGS (3)
  1. DUPIXENT [Suspect]
     Active Substance: DUPILUMAB
     Indication: Neurodermatitis
     Dosage: 600 MG, 1X
     Route: 058
     Dates: start: 20241010, end: 20241010
  2. DUPIXENT [Suspect]
     Active Substance: DUPILUMAB
     Indication: Eczema
     Dosage: 300 MG, QOW
     Route: 058
     Dates: start: 20241024
  3. CEPHALEXIN [Concomitant]
     Active Substance: CEPHALEXIN
     Dosage: UNK

REACTIONS (5)
  - Breast cancer [Not Recovered/Not Resolved]
  - Procedural pain [Unknown]
  - Post procedural contusion [Unknown]
  - Skin irritation [Unknown]
  - Surgery [Unknown]

NARRATIVE: CASE EVENT DATE: 20240101
